FAERS Safety Report 11024795 (Version 1)
Quarter: 2015Q2

REPORT INFORMATION
  Report Type: Spontaneous
  Country: US (occurrence: None)
  Receive Date: 20150413
  Receipt Date: 20150413
  Transmission Date: 20150821
  Serious: Yes (Hospitalization)
  Sender: FDA-Public Use
  Company Number: None

PATIENT
  Age: 96 Year
  Sex: Female
  Weight: 67 kg

DRUGS (9)
  1. AMIDARONE [Concomitant]
     Active Substance: AMIODARONE
  2. PROTONIX [Concomitant]
     Active Substance: PANTOPRAZOLE SODIUM
  3. APIXABAN 2.5 MG [Suspect]
     Active Substance: APIXABAN
     Indication: ATRIAL FIBRILLATION
     Route: 048
  4. SIMVASTATIN. [Concomitant]
     Active Substance: SIMVASTATIN
  5. ROCEPHIN [Concomitant]
     Active Substance: CEFTRIAXONE SODIUM
  6. DOCUSATE [Concomitant]
     Active Substance: DOCUSATE
  7. LACTOBACILLUS [Concomitant]
     Active Substance: LACTOBACILLUS ACIDOPHILUS
  8. MIRTAZAPINE. [Concomitant]
     Active Substance: MIRTAZAPINE
  9. MORPHINE [Concomitant]
     Active Substance: MORPHINE

REACTIONS (1)
  - Haematuria [None]

NARRATIVE: CASE EVENT DATE: 20150409
